FAERS Safety Report 8418390-1 (Version None)
Quarter: 2012Q2

REPORT INFORMATION
  Report Type: 
  Country: None (occurrence: None)
  Receive Date: 20120607
  Receipt Date: 20120531
  Transmission Date: 20120825
  Serious: Yes (Other)
  Sender: FDA-Public Use
  Company Number: JP-PFIZER INC-2012120466

PATIENT
  Age: 83 Year
  Sex: Male

DRUGS (2)
  1. PLETAL [Suspect]
     Dosage: 200 MG, 1X/DAY
     Route: 048
     Dates: start: 20120507, end: 20120516
  2. LYRICA [Suspect]
     Indication: NEURALGIA
     Dosage: 75 MG, 1X/DAY
     Route: 048
     Dates: start: 20120507, end: 20120516

REACTIONS (1)
  - INTERSTITIAL LUNG DISEASE [None]
